FAERS Safety Report 8472477-6 (Version None)
Quarter: 2012Q2

REPORT INFORMATION
  Report Type: 
  Country: None (occurrence: None)
  Receive Date: 20120627
  Receipt Date: 20111014
  Transmission Date: 20120825
  Serious: No
  Sender: FDA-Public Use
  Company Number: US-AMGEN-USASP2011053545

PATIENT
  Age: 78 Year
  Sex: Female
  Weight: 50.794 kg

DRUGS (1)
  1. PROCRIT [Suspect]
     Indication: HAEMOGLOBIN DECREASED
     Dosage: UNK, QWK
     Route: 058
     Dates: start: 20111005

REACTIONS (2)
  - HAEMOGLOBIN INCREASED [None]
  - PRURITUS [None]
